FAERS Safety Report 6019199-9 (Version None)
Quarter: 2008Q4

REPORT INFORMATION
  Report Type: 
  Country: None (occurrence: None)
  Receive Date: 20081224
  Receipt Date: 20081212
  Transmission Date: 20090506
  Serious: Yes (Other)
  Sender: FDA-Public Use
  Company Number: US-PFIZER INC-2008155443

PATIENT
  Sex: Female
  Weight: 68.027 kg

DRUGS (9)
  1. LYRICA [Suspect]
     Indication: FIBROMYALGIA
     Dosage: 50 MG, 2X/DAY
     Dates: start: 20080408
  2. ESTROGEN NOS [Concomitant]
     Dosage: UNK
  3. ULTRAM [Concomitant]
     Dosage: 50 MG, UNK
  4. EFFEXOR [Concomitant]
     Dosage: UNK
  5. MONTELUKAST SODIUM [Concomitant]
     Dosage: UNK
  6. ACETYLSALICYLIC ACID [Concomitant]
     Dosage: UNK
  7. ALL OTHER THERAPEUTIC PRODUCTS [Concomitant]
     Dosage: UNK
  8. SALBUTAMOL [Concomitant]
     Dosage: UNK
  9. LORTAB [Concomitant]
     Dosage: UNK

REACTIONS (5)
  - ABDOMINAL DISTENSION [None]
  - BLOOD PRESSURE INCREASED [None]
  - DYSPNOEA [None]
  - HEART RATE INCREASED [None]
  - WEIGHT INCREASED [None]
